FAERS Safety Report 7496346-3 (Version None)
Quarter: 2011Q2

REPORT INFORMATION
  Report Type: 
  Country: None (occurrence: None)
  Receive Date: 20110523
  Receipt Date: 20110516
  Transmission Date: 20111010
  Serious: Yes (Death, Other)
  Sender: FDA-Public Use
  Company Number: DE-ELI_LILLY_AND_COMPANY-DE201105004854

PATIENT
  Age: 16 Year
  Sex: Female

DRUGS (7)
  1. GEMCITABINE HYDROCHLORIDE [Suspect]
     Dosage: 480 MG/M2, UNKNOWN
  2. GLUCOSE [Concomitant]
     Indication: PROPHYLAXIS
     Dosage: 5 %, AT 3L/M2/D
  3. GEMCITABINE HYDROCHLORIDE [Suspect]
     Indication: DESMOPLASTIC SMALL ROUND CELL TUMOUR
     Dosage: 1000 MG/M2, /0.5 HR ON DAY 1, 8 AND 15
     Route: 042
  4. IRINOTECAN HYDROCHLORIDE [Concomitant]
     Indication: DESMOPLASTIC SMALL ROUND CELL TUMOUR
     Dosage: 175 MG/M2, EVERY 2 HOURS
     Route: 042
  5. SODIUM CHLORIDE [Concomitant]
     Indication: PROPHYLAXIS
     Dosage: 0.45 %, UNK
  6. GEMCITABINE HYDROCHLORIDE [Suspect]
     Dosage: 645 MG/M2, UNKNOWN
  7. OXALIPLATIN [Concomitant]
     Indication: DESMOPLASTIC SMALL ROUND CELL TUMOUR
     Dosage: 85 MG/M2, EVERY 2 HOURS
     Route: 042

REACTIONS (2)
  - THROMBOCYTOPENIA [None]
  - DEATH [None]
